FAERS Safety Report 4342802-6 (Version None)
Quarter: 2004Q2

REPORT INFORMATION
  Report Type: 
  Country: None (occurrence: None)
  Receive Date: 20040419
  Receipt Date: 20040419
  Transmission Date: 20050107
  Serious: Yes (Death)
  Sender: FDA-Public Use
  Company Number: None

PATIENT
  Age: 47 Year
  Sex: Male
  Weight: 81.6475 kg

DRUGS (2)
  1. PAXIL CR [Suspect]
     Indication: OBSESSIVE THOUGHTS
     Dosage: 25 MG QD PO
     Route: 048
     Dates: start: 20031007
  2. PAXIL CR [Suspect]
     Indication: OBSESSIVE THOUGHTS
     Dosage: 25 MG QD PO
     Route: 048
     Dates: start: 20031209

REACTIONS (8)
  - AFFECT LABILITY [None]
  - AGITATION [None]
  - COMPLETED SUICIDE [None]
  - GUN SHOT WOUND [None]
  - INSOMNIA [None]
  - SUICIDAL IDEATION [None]
  - THINKING ABNORMAL [None]
  - TREMOR [None]
